FAERS Safety Report 16858214 (Version 1)
Quarter: 2019Q3

REPORT INFORMATION
  Report Type: Spontaneous
  Country: US (occurrence: US)
  Receive Date: 20190926
  Receipt Date: 20190926
  Transmission Date: 20191005
  Serious: Yes (Hospitalization)
  Sender: FDA-Public Use
  Company Number: US-JNJFOC-20190928276

PATIENT
  Age: 39 Year
  Sex: Male

DRUGS (1)
  1. YONDELIS [Suspect]
     Active Substance: TRABECTEDIN
     Indication: LIPOSARCOMA METASTATIC
     Route: 042
     Dates: start: 20190830

REACTIONS (3)
  - Pyrexia [Recovered/Resolved]
  - Product packaging issue [Unknown]
  - Transaminases increased [Recovered/Resolved]

NARRATIVE: CASE EVENT DATE: 20190830
